FAERS Safety Report 8617374-8 (Version None)
Quarter: 2012Q3

REPORT INFORMATION
  Report Type: 
  Country: None (occurrence: None)
  Receive Date: 20120823
  Receipt Date: 20120815
  Transmission Date: 20120928
  Serious: Yes (Hospitalization, Other)
  Sender: FDA-Public Use
  Company Number: US-009507513-1203USA01692

PATIENT

DRUGS (8)
  1. FOSAMAX [Suspect]
     Indication: BONE LOSS
     Dosage: 10 MG, UNK
     Route: 048
     Dates: start: 20020121, end: 20020531
  2. FOSAMAX [Suspect]
     Dosage: UNK
  3. SYNTHROID [Concomitant]
     Indication: HYPOTHYROIDISM
  4. BISOPROLOL FUMARATE [Concomitant]
  5. ALENDRONATE SODIUM [Suspect]
     Indication: BONE LOSS
     Dosage: 70 MG, QW
     Dates: start: 20080320, end: 20100321
  6. SIMVASTATIN [Concomitant]
     Indication: BLOOD CHOLESTEROL INCREASED
  7. LEVOXYL [Concomitant]
  8. FOSAMAX [Suspect]
     Indication: OSTEOPOROSIS
     Dosage: 70 MG, QW
     Route: 048
     Dates: start: 20020612, end: 20080228

REACTIONS (23)
  - COLONIC POLYP [None]
  - FALL [None]
  - RENAL FAILURE [None]
  - HAEMORRHOIDS [None]
  - CONGENITAL CYSTIC KIDNEY DISEASE [None]
  - ARTHRALGIA [None]
  - RENAL DISORDER [None]
  - ANAEMIA [None]
  - FATIGUE [None]
  - OESTROGEN DEFICIENCY [None]
  - FEMUR FRACTURE [None]
  - DYSLIPIDAEMIA [None]
  - HYPERGLYCAEMIA [None]
  - UNDIFFERENTIATED CONNECTIVE TISSUE DISEASE [None]
  - SYSTEMIC LUPUS ERYTHEMATOSUS [None]
  - FLUID RETENTION [None]
  - SPINAL OSTEOARTHRITIS [None]
  - CARPAL TUNNEL SYNDROME [None]
  - TOOTH DISORDER [None]
  - ARTHROPATHY [None]
  - CARDIOVASCULAR INSUFFICIENCY [None]
  - HIP FRACTURE [None]
  - ANKLE FRACTURE [None]
